FAERS Safety Report 8382798-3 (Version None)
Quarter: 2012Q2

REPORT INFORMATION
  Report Type: 
  Country: None (occurrence: None)
  Receive Date: 20120524
  Receipt Date: 20120518
  Transmission Date: 20120825
  Serious: Yes (Other)
  Sender: FDA-Public Use
  Company Number: US-SANOFI-AVENTIS-2012SA036053

PATIENT
  Sex: Female

DRUGS (2)
  1. LANTUS [Suspect]
  2. SOLOSTAR [Suspect]

REACTIONS (4)
  - HYPOGLYCAEMIA [None]
  - KETOSIS [None]
  - PRODUCT QUALITY ISSUE [None]
  - BLOOD GLUCOSE INCREASED [None]
